FAERS Safety Report 16767962 (Version 1)
Quarter: 2019Q3

REPORT INFORMATION
  Report Type: Spontaneous
  Country: JP (occurrence: JP)
  Receive Date: 20190903
  Receipt Date: 20190903
  Transmission Date: 20191005
  Serious: Yes (Hospitalization)
  Sender: FDA-Public Use
  Company Number: GXJP2019JP001568

PATIENT
  Sex: Male

DRUGS (2)
  1. PITAVASTATIN. [Suspect]
     Active Substance: PITAVASTATIN CALCIUM
     Indication: DYSLIPIDAEMIA
     Dosage: 2 MG, UNK
     Route: 048
  2. CORODIL (ENALAPRIL MALEATE) [Suspect]
     Active Substance: ENALAPRIL MALEATE
     Indication: HYPERTENSION
     Dosage: 5 MG, UNK
     Route: 048

REACTIONS (5)
  - Aphasia [Unknown]
  - Venous thrombosis limb [Unknown]
  - Altered state of consciousness [Unknown]
  - Cerebral artery embolism [Unknown]
  - Auditory nerve disorder [Unknown]
